FAERS Safety Report 7401870-5 (Version None)
Quarter: 2011Q2

REPORT INFORMATION
  Report Type: 
  Country: None (occurrence: None)
  Receive Date: 20110408
  Receipt Date: 20110207
  Transmission Date: 20111010
  Serious: Yes (Hospitalization)
  Sender: FDA-Public Use
  Company Number: US-JNJFOC-20101208922

PATIENT
  Sex: Male
  Weight: 104.33 kg

DRUGS (15)
  1. NEXIUM [Concomitant]
     Indication: ULCER
  2. LANTUS [Concomitant]
     Indication: DIABETES MELLITUS
  3. FEXOFENADINE HCL [Concomitant]
     Indication: MULTIPLE ALLERGIES
  4. JANUVIA [Concomitant]
     Indication: DIABETES MELLITUS
  5. IRON [Concomitant]
     Indication: ULCER HAEMORRHAGE
  6. TYLENOL-500 [Suspect]
     Route: 048
  7. LIPITOR [Concomitant]
     Indication: BLOOD CHOLESTEROL
  8. ASPIRIN [Concomitant]
     Indication: CORONARY ARTERIAL STENT INSERTION
  9. FERROUS SULFATE TAB [Concomitant]
  10. GLYBURIDE AND METFORMIN HCL [Concomitant]
     Indication: DIABETES MELLITUS
  11. TYLENOL-500 [Suspect]
     Indication: ARTHRITIS
     Route: 048
  12. ALLEGRA [Concomitant]
  13. LISINOPRIL AND HYDROCHLOROTHIAZIDE [Concomitant]
     Indication: BLOOD PRESSURE
  14. CENTRUM SILVER [Concomitant]
     Indication: VITAMIN SUPPLEMENTATION
  15. VIAGRA [Concomitant]

REACTIONS (3)
  - PRODUCT LABEL ON WRONG PRODUCT [None]
  - WRONG DRUG ADMINISTERED [None]
  - GASTRIC ULCER HAEMORRHAGE [None]
